FAERS Safety Report 10716650 (Version 1)
Quarter: 2015Q1

REPORT INFORMATION
  Report Type: Spontaneous
  Country: US (occurrence: None)
  Receive Date: 20150115
  Receipt Date: 20150115
  Transmission Date: 20150721
  Serious: No
  Sender: FDA-Public Use
  Company Number: None

PATIENT
  Age: 65 Year
  Sex: Female
  Weight: 115 kg

DRUGS (3)
  1. TRAZODONE [Concomitant]
     Active Substance: TRAZODONE HYDROCHLORIDE
  2. BONIVA [Suspect]
     Active Substance: IBANDRONATE SODIUM
     Indication: BONE DENSITY ABNORMAL
     Dosage: 1 PILL, 1/MONTHLY BY MOUTH
     Route: 048
     Dates: start: 20150101, end: 20150101
  3. DIAZEPAM. [Concomitant]
     Active Substance: DIAZEPAM

REACTIONS (6)
  - Back pain [None]
  - Headache [None]
  - Vomiting [None]
  - Malaise [None]
  - Insomnia [None]
  - Drug hypersensitivity [None]

NARRATIVE: CASE EVENT DATE: 20150102
